FAERS Safety Report 11399455 (Version 1)
Quarter: 2015Q3

REPORT INFORMATION
  Report Type: Spontaneous
  Country: US (occurrence: US)
  Receive Date: 20150820
  Receipt Date: 20150820
  Transmission Date: 20151125
  Serious: No
  Sender: FDA-Public Use
  Company Number: US-GALDERMA-US14003140

PATIENT

DRUGS (1)
  1. PLIAGLIS [Suspect]
     Active Substance: LIDOCAINE\TETRACAINE
     Indication: LOCAL ANAESTHESIA
     Dosage: 7%/7%
     Route: 061
     Dates: start: 201405

REACTIONS (5)
  - Product adhesion issue [Unknown]
  - Skin warm [Recovered/Resolved]
  - Erythema [Recovered/Resolved]
  - Skin discomfort [Recovered/Resolved]
  - Skin swelling [Recovered/Resolved]
